FAERS Safety Report 17912833 (Version 7)
Quarter: 2020Q4

REPORT INFORMATION
  Report Type: Report from Study
  Country: US (occurrence: US)
  Receive Date: 20200618
  Receipt Date: 20201208
  Transmission Date: 20210113
  Serious: Yes (Other)
  Sender: FDA-Public Use
  Company Number: US-GLAXOSMITHKLINE-US2020AMR100981

PATIENT
  Sex: Female

DRUGS (8)
  1. BACTRIM [Suspect]
     Active Substance: SULFAMETHOXAZOLE\TRIMETHOPRIM
     Indication: CELLULITIS
     Dosage: UNK
  2. NIRAPARIB [Suspect]
     Active Substance: NIRAPARIB
     Dosage: 200MG X 1 WEEK
  3. NIRAPARIB [Suspect]
     Active Substance: NIRAPARIB
     Dosage: 300 MG
  4. NIRAPARIB [Suspect]
     Active Substance: NIRAPARIB
     Dosage: 200 MG, QD
  5. NIRAPARIB [Suspect]
     Active Substance: NIRAPARIB
     Dosage: 300 MG, QD
     Dates: end: 20200927
  6. NIRAPARIB [Suspect]
     Active Substance: NIRAPARIB
     Dosage: 200 MG, QD
     Dates: start: 20200928
  7. NIRAPARIB [Suspect]
     Active Substance: NIRAPARIB
     Indication: GASTROINTESTINAL NEOPLASM
     Dosage: 300 MG, QD
     Dates: start: 20200608
  8. NIRAPARIB [Suspect]
     Active Substance: NIRAPARIB
     Dosage: 100 MG (100MG X1 WEEK)
     Dates: start: 20200701

REACTIONS (17)
  - Weight decreased [Recovered/Resolved]
  - Haematocrit increased [Unknown]
  - Off label use [Unknown]
  - Balance disorder [Unknown]
  - Product use in unapproved indication [Unknown]
  - Product dose omission issue [Unknown]
  - Decreased appetite [Recovering/Resolving]
  - Haemoglobin increased [Unknown]
  - Retinal vein occlusion [Unknown]
  - Nausea [Not Recovered/Not Resolved]
  - Loss of personal independence in daily activities [Unknown]
  - White blood cell count decreased [Unknown]
  - Cellulitis [Unknown]
  - Adverse drug reaction [Unknown]
  - Drug hypersensitivity [Recovered/Resolved]
  - Carbohydrate antigen 125 increased [Not Recovered/Not Resolved]
  - Full blood count decreased [Unknown]
